FAERS Safety Report 21998423 (Version 2)
Quarter: 2023Q1

REPORT INFORMATION
  Report Type: Spontaneous
  Country: US (occurrence: None)
  Receive Date: 20230216
  Receipt Date: 20230224
  Transmission Date: 20230418
  Serious: No
  Sender: FDA-Public Use
  Company Number: 2023A033734

PATIENT
  Age: 86 Year
  Sex: Female
  Weight: 68 kg

DRUGS (1)
  1. BUDESONIDE\FORMOTEROL\GLYCOPYRRONIUM [Suspect]
     Active Substance: BUDESONIDE\FORMOTEROL\GLYCOPYRRONIUM
     Indication: Interstitial lung disease
     Route: 055
     Dates: start: 2022

REACTIONS (12)
  - Body height decreased [Unknown]
  - COVID-19 [Unknown]
  - Lung disorder [Unknown]
  - Hand fracture [Unknown]
  - Decreased activity [Unknown]
  - Illness [Unknown]
  - Pseudomonas infection [Unknown]
  - Pneumonia [Unknown]
  - Off label use [Unknown]
  - Incorrect dose administered by device [Unknown]
  - Device use issue [Unknown]
  - Device delivery system issue [Unknown]

NARRATIVE: CASE EVENT DATE: 20220101
